FAERS Safety Report 10994191 (Version 4)
Quarter: 2015Q2

REPORT INFORMATION
  Report Type: Spontaneous
  Country: AR (occurrence: AR)
  Receive Date: 20150407
  Receipt Date: 20150626
  Transmission Date: 20150821
  Serious: Yes (Hospitalization, Other)
  Sender: FDA-Public Use
  Company Number: AR-PFIZER INC-2015114963

PATIENT
  Age: 55 Year
  Sex: Male

DRUGS (6)
  1. INLYTA [Suspect]
     Active Substance: AXITINIB
     Indication: RENAL CELL CARCINOMA
     Dosage: 10 MG, DAILY
     Dates: start: 20150305, end: 20150416
  2. SINTROM [Concomitant]
     Active Substance: ACENOCOUMAROL
     Dosage: UNK
  3. CARVEDILOL. [Concomitant]
     Active Substance: CARVEDILOL
     Dosage: UNK
  4. ENALAPRIL MALEATE. [Concomitant]
     Active Substance: ENALAPRIL MALEATE
     Dosage: UNK
  5. DERMOSONA [Concomitant]
     Dosage: UNK
  6. INLYTA [Suspect]
     Active Substance: AXITINIB
     Dosage: 5 MG, WEEKLY

REACTIONS (5)
  - Dehydration [Recovered/Resolved]
  - Weight decreased [Recovered/Resolved]
  - Muscle atrophy [Recovered/Resolved]
  - Pharyngeal injury [Recovered/Resolved]
  - Mouth injury [Recovered/Resolved]

NARRATIVE: CASE EVENT DATE: 201503
